FAERS Safety Report 5060849-1 (Version None)
Quarter: 2006Q3

REPORT INFORMATION
  Report Type: 
  Country: None (occurrence: None)
  Receive Date: 20060725
  Receipt Date: 20060718
  Transmission Date: 20061208
  Serious: Yes (Disabling)
  Sender: FDA-Public Use
  Company Number: FR-GLAXOSMITHKLINE-B0431544A

PATIENT
  Age: 78 Year
  Sex: Female

DRUGS (2)
  1. DEROXAT [Suspect]
     Dosage: 20MG PER DAY
     Route: 048
     Dates: start: 20031001, end: 20051015
  2. IMOVANE [Concomitant]
     Dosage: 3.75MG PER DAY
     Route: 065
     Dates: start: 20031001

REACTIONS (5)
  - COGWHEEL RIGIDITY [None]
  - HYPOTONIA [None]
  - MOBILITY DECREASED [None]
  - PARKINSONISM [None]
  - TREMOR [None]
